FAERS Safety Report 6906645-9 (Version None)
Quarter: 2010Q3

REPORT INFORMATION
  Report Type: 
  Country: None (occurrence: None)
  Receive Date: 20100804
  Receipt Date: 20100723
  Transmission Date: 20110219
  Serious: Yes (Other)
  Sender: FDA-Public Use
  Company Number: US-PFIZER INC-2009151399

PATIENT
  Sex: Female
  Weight: 72 kg

DRUGS (12)
  1. CHANTIX [Suspect]
     Indication: SMOKING CESSATION THERAPY
     Dosage: 0.5 MG, 1X/DAY
     Route: 048
     Dates: start: 20090102
  2. CHANTIX [Suspect]
     Dosage: UNK
     Route: 048
     Dates: start: 20100101, end: 20100101
  3. NEURONTIN [Suspect]
     Indication: FIBROMYALGIA
     Dosage: 600 MG, 3X/DAY
     Route: 048
  4. LITHIUM [Concomitant]
     Indication: BIPOLAR DISORDER
     Dosage: 300 MG, 3X/DAY
     Route: 048
  5. OXYCONTIN [Concomitant]
     Dosage: UNK
     Route: 048
  6. PROMETHAZINE [Concomitant]
     Dosage: UNK
     Route: 048
  7. SOMA [Concomitant]
     Dosage: 350 MG, 1X/DAY
     Route: 048
  8. HALOPERIDOL [Concomitant]
     Dosage: UNK
     Route: 048
  9. OXYCODONE HCL AND ACETAMINOPHEN [Concomitant]
     Dosage: UNK
     Route: 048
  10. RISPERDAL [Concomitant]
     Dosage: UNK
     Route: 048
  11. CYMBALTA [Concomitant]
     Dosage: 60 MG, 1X/DAY
     Route: 048
  12. RISPERIDONE [Concomitant]
     Dosage: 37.5 MG,EVERY TWO WEEKS
     Route: 030

REACTIONS (12)
  - AGITATION [None]
  - AKINESIA [None]
  - DYSPNOEA [None]
  - FEELING HOT [None]
  - IRRITABILITY [None]
  - MANIA [None]
  - NEURALGIA [None]
  - PRURITUS [None]
  - PSYCHOTIC DISORDER [None]
  - SKIN DISCOLOURATION [None]
  - SUICIDAL IDEATION [None]
  - WEIGHT INCREASED [None]
